FAERS Safety Report 9867726 (Version 1)
Quarter: 2014Q1

REPORT INFORMATION
  Report Type: Spontaneous
  Country: US (occurrence: US)
  Receive Date: 20140204
  Receipt Date: 20140204
  Transmission Date: 20141002
  Serious: No
  Sender: FDA-Public Use
  Company Number: US-B.I. PHARMACEUTICALS,INC./RIDGEFIELD-2014-BI-03764BP

PATIENT
  Sex: Male

DRUGS (2)
  1. GILOTRIF [Suspect]
     Indication: EGFR GENE MUTATION
     Route: 048
  2. GILOTRIF [Suspect]
     Indication: NON-SMALL CELL LUNG CANCER

REACTIONS (1)
  - Ejection fraction decreased [Recovered/Resolved]
